FAERS Safety Report 8547520-6 (Version None)
Quarter: 2012Q3

REPORT INFORMATION
  Report Type: 
  Country: None (occurrence: None)
  Receive Date: 20120727
  Receipt Date: 20120327
  Transmission Date: 20120928
  Serious: No
  Sender: FDA-Public Use
  Company Number: US-ASTRAZENECA-2012SE20893

PATIENT
  Age: 21 Year
  Sex: Male

DRUGS (1)
  1. SEROQUEL [Suspect]
     Route: 048

REACTIONS (5)
  - LOGORRHOEA [None]
  - LOSS OF CONSCIOUSNESS [None]
  - FEELING OF RELAXATION [None]
  - BIPOLAR DISORDER [None]
  - PSYCHOMOTOR HYPERACTIVITY [None]
